FAERS Safety Report 16223189 (Version 2)
Quarter: 2019Q2

REPORT INFORMATION
  Report Type: Report from Study
  Country: None (occurrence: FR)
  Receive Date: 20190422
  Receipt Date: 20190424
  Transmission Date: 20190711
  Serious: Yes (Other)
  Sender: FDA-Public Use
  Company Number: FR-ABBVIE-19S-056-2751276-00

PATIENT
  Age: 80 Year
  Sex: Female

DRUGS (1)
  1. DUODOPA [Suspect]
     Active Substance: CARBIDOPA\LEVODOPA
     Indication: PARKINSON^S DISEASE
     Dosage: MORNING DOSE 9ML; CONTINOUS FLOW RATE (DURING A DAY) 3.7ML/H; EXTRA DOSE 3ML
     Route: 050
     Dates: start: 20150925

REACTIONS (1)
  - Vertigo [Not Recovered/Not Resolved]
